FAERS Safety Report 8605485-2 (Version None)
Quarter: 2012Q3

REPORT INFORMATION
  Report Type: 
  Country: None (occurrence: None)
  Receive Date: 20120820
  Receipt Date: 20120809
  Transmission Date: 20120928
  Serious: Yes (Other)
  Sender: FDA-Public Use
  Company Number: CN-ASTRAZENECA-2012SE57782

PATIENT
  Sex: Female
  Weight: 46 kg

DRUGS (6)
  1. TINIDAZOLE [Concomitant]
     Indication: LUNG INFECTION
     Route: 041
     Dates: start: 20090602, end: 20090624
  2. ESOMEPRAZOLE SODIUM [Suspect]
     Indication: HEPATIC CIRRHOSIS
     Route: 041
     Dates: start: 20090602, end: 20090612
  3. ESOMEPRAZOLE SODIUM [Suspect]
     Route: 041
     Dates: start: 20090613, end: 20090624
  4. PIPERACILLIN SODIUM [Concomitant]
     Indication: LUNG INFECTION
     Route: 041
     Dates: start: 20090602, end: 20090624
  5. LEVOFLOXACIN LACTATE [Concomitant]
     Indication: LUNG INFECTION
     Route: 041
     Dates: start: 20090602, end: 20090624
  6. SULBACTAM SODIUM [Concomitant]
     Indication: LUNG INFECTION
     Route: 041
     Dates: start: 20090602, end: 20090624

REACTIONS (1)
  - BONE MARROW FAILURE [None]
